FAERS Safety Report 22980337 (Version 3)
Quarter: 2023Q4

REPORT INFORMATION
  Report Type: Report from Study
  Country: US (occurrence: US)
  Receive Date: 20230925
  Receipt Date: 20231210
  Transmission Date: 20240110
  Serious: Yes (Disabling, Other)
  Sender: FDA-Public Use
  Company Number: US-002147023-NVSC2023US206227

PATIENT
  Sex: Male

DRUGS (1)
  1. ENTRESTO [Suspect]
     Active Substance: SACUBITRIL\VALSARTAN
     Indication: Product used for unknown indication
     Dosage: UNK (3-4 TIMES A DAY)
     Route: 065

REACTIONS (4)
  - Cardiac failure [Unknown]
  - Cardiac failure congestive [Unknown]
  - Disability [Unknown]
  - Intentional overdose [Unknown]
